FAERS Safety Report 13857292 (Version 2)
Quarter: 2017Q3

REPORT INFORMATION
  Report Type: Spontaneous
  Country: GR (occurrence: GR)
  Receive Date: 20170810
  Receipt Date: 20170823
  Transmission Date: 20171127
  Serious: Yes (Other)
  Sender: FDA-Public Use
  Company Number: GR-009507513-1708GRC004834

PATIENT
  Age: 66 Year
  Sex: Male
  Weight: 75 kg

DRUGS (1)
  1. KEYTRUDA [Suspect]
     Active Substance: PEMBROLIZUMAB
     Indication: NON-SMALL CELL LUNG CANCER
     Dosage: 200 MG, 1 DOSE EVERY 21 DAYS
     Route: 042
     Dates: start: 20170725

REACTIONS (6)
  - Malignant neoplasm progression [Unknown]
  - Pyrexia [Recovered/Resolved]
  - Lymphadenopathy [Unknown]
  - Tumour lysis syndrome [Unknown]
  - Pharyngeal abscess [Recovered/Resolved]
  - Pharyngeal lesion [Unknown]

NARRATIVE: CASE EVENT DATE: 2017
